FAERS Safety Report 14738271 (Version 1)
Quarter: 2018Q2

REPORT INFORMATION
  Report Type: Spontaneous
  Country: AU (occurrence: AU)
  Receive Date: 20180409
  Receipt Date: 20180409
  Transmission Date: 20180711
  Serious: Yes (Other)
  Sender: FDA-Public Use
  Company Number: AU-FERRINGPH-2018FE01613

PATIENT

DRUGS (4)
  1. CARVEDILOL. [Concomitant]
     Active Substance: CARVEDILOL
  2. PERINDOPRIL [Concomitant]
     Active Substance: PERINDOPRIL
  3. DESMOPRESSIN [Suspect]
     Active Substance: DESMOPRESSIN
     Indication: NEPHROGENIC DIABETES INSIPIDUS
     Dosage: 1 ?G, 2 TIMES DAILY
     Route: 058
  4. DESMOPRESSIN [Suspect]
     Active Substance: DESMOPRESSIN
     Indication: NEPHROGENIC DIABETES INSIPIDUS
     Dosage: 200 ?G, 2 TIMES DAILY
     Route: 048

REACTIONS (5)
  - Intracardiac thrombus [Recovered/Resolved]
  - Product use in unapproved indication [Recovered/Resolved]
  - Embolism arterial [Unknown]
  - Pulmonary oedema [Unknown]
  - Off label use [Recovered/Resolved]
